FAERS Safety Report 14480960 (Version 12)
Quarter: 2020Q1

REPORT INFORMATION
  Report Type: Spontaneous
  Country: US (occurrence: US)
  Receive Date: 20180202
  Receipt Date: 20200103
  Transmission Date: 20200409
  Serious: Yes (Hospitalization, Other)
  Sender: FDA-Public Use
  Company Number: US-CELGENEUS-USA-20180111693

PATIENT
  Age: 11 Year
  Sex: Female
  Weight: 32.7 kg

DRUGS (38)
  1. CHLORHEXIDINE GLUCONATE. [Concomitant]
     Active Substance: CHLORHEXIDINE GLUCONATE
     Indication: GINGIVAL HYPERTROPHY
     Dosage: 45 MILLILITER
     Route: 060
     Dates: start: 20171121
  2. DOCUSATE SODIUM AND CASANTHRANOL [Concomitant]
     Indication: CONSTIPATION
     Dosage: 100 MILLIGRAM
     Route: 048
     Dates: start: 20171121
  3. DIPHENHYDRAMINE HYDROCHLORIDE. [Concomitant]
     Active Substance: DIPHENHYDRAMINE HYDROCHLORIDE
     Indication: NAUSEA
     Dosage: 100 MILLIGRAM
     Route: 048
     Dates: start: 20171121
  4. CALCIUM CARBONATE. [Concomitant]
     Active Substance: CALCIUM CARBONATE
     Indication: BLOOD CALCIUM DECREASED
     Dosage: 2000 MILLIGRAM
     Route: 048
     Dates: start: 20171227
  5. ASCORBIC ACID. [Concomitant]
     Active Substance: ASCORBIC ACID
     Indication: VITAMIN SUPPLEMENTATION
     Dosage: 2 MILLILITER
     Route: 048
     Dates: start: 20171221
  6. VORICONAZOLE. [Concomitant]
     Active Substance: VORICONAZOLE
     Indication: PRODUCT USED FOR UNKNOWN INDICATION
     Route: 065
  7. FRESH FROZEN PLASMA [Concomitant]
     Active Substance: HUMAN PLASMA
     Indication: PRODUCT USED FOR UNKNOWN INDICATION
     Route: 065
  8. ONDANSETRON HYDROCHLORIDE. [Concomitant]
     Active Substance: ONDANSETRON HYDROCHLORIDE
     Indication: NAUSEA
     Dosage: 24 MILLIGRAM
     Route: 060
     Dates: start: 20171121
  9. ONDANSETRON HYDROCHLORIDE. [Concomitant]
     Active Substance: ONDANSETRON HYDROCHLORIDE
     Indication: VOMITING
  10. LACTULOSE. [Concomitant]
     Active Substance: LACTULOSE
     Indication: CONSTIPATION
     Dosage: 15 MILLILITER
     Route: 048
     Dates: start: 20171121
  11. NICOTINAMIDE [Concomitant]
     Active Substance: NIACINAMIDE
     Indication: VITAMIN SUPPLEMENTATION
     Dosage: 2 MILLILITER
     Route: 048
     Dates: start: 20171221
  12. AMINOCAPROIC ACID. [Concomitant]
     Active Substance: AMINOCAPROIC ACID
     Indication: MUCOSAL HAEMORRHAGE
     Dosage: 32 MILLILITER
     Route: 065
     Dates: start: 20171227
  13. POTASSIUM CHLORIDE. [Concomitant]
     Active Substance: POTASSIUM CHLORIDE
     Indication: BLOOD POTASSIUM DECREASED
     Route: 065
     Dates: start: 20180206, end: 20180206
  14. VENETOCLAX. [Suspect]
     Active Substance: VENETOCLAX
     Dosage: 250 MILLIGRAM
     Route: 048
     Dates: start: 20171226, end: 20180122
  15. ACICLOVIR SODIUM [Concomitant]
     Active Substance: ACYCLOVIR SODIUM
     Indication: ANTIVIRAL PROPHYLAXIS
     Dosage: 800 MILLIGRAM
     Route: 048
     Dates: start: 20171121
  16. ERGOCALCIFEROL. [Concomitant]
     Active Substance: ERGOCALCIFEROL
     Indication: VITAMIN SUPPLEMENTATION
     Dosage: 2 MILLILITER
     Route: 048
     Dates: start: 20171221
  17. THIAMINE. [Concomitant]
     Active Substance: THIAMINE
     Indication: VITAMIN SUPPLEMENTATION
     Dosage: 2 MILLILITER
     Route: 048
     Dates: start: 20171221
  18. LORAZEPAM. [Concomitant]
     Active Substance: LORAZEPAM
     Indication: VOMITING
  19. SENNA [Concomitant]
     Active Substance: SENNA LEAF\SENNOSIDES\SENNOSIDES A AND B
     Indication: CONSTIPATION
     Dosage: 17.2 MILLIGRAM
     Route: 048
     Dates: start: 20171221
  20. VIDAZA [Suspect]
     Active Substance: AZACITIDINE
     Indication: REFRACTORY CANCER
     Dosage: 75 MILLIGRAM/SQ. METER
     Route: 058
     Dates: start: 20171226, end: 20180101
  21. VIDAZA [Suspect]
     Active Substance: AZACITIDINE
     Dosage: 75 MILLIGRAM/SQ. METER
     Route: 058
     Dates: start: 20180129, end: 20180204
  22. VENETOCLAX. [Suspect]
     Active Substance: VENETOCLAX
     Dosage: 250 MILLIGRAM
     Route: 048
     Dates: start: 20171201, end: 20171201
  23. LORAZEPAM. [Concomitant]
     Active Substance: LORAZEPAM
     Indication: NAUSEA
     Dosage: .5 MILLIGRAM
     Route: 048
     Dates: start: 20171221
  24. VENETOCLAX. [Suspect]
     Active Substance: VENETOCLAX
     Dosage: 500 MILLIGRAM
     Route: 048
     Dates: start: 20171202, end: 20171225
  25. HYOSCINE [Concomitant]
     Active Substance: SCOPOLAMINE
     Indication: NAUSEA
     Dosage: 1 PATCH BEHIND EAR
     Route: 062
     Dates: start: 20171219
  26. PLATELETS [Concomitant]
     Active Substance: HUMAN PLATELET, ALLOGENIC
     Indication: PRODUCT USED FOR UNKNOWN INDICATION
     Route: 065
  27. VENETOCLAX. [Suspect]
     Active Substance: VENETOCLAX
     Dosage: 250 MILLIGRAM
     Route: 048
     Dates: start: 20180212, end: 20180218
  28. LEVOFLOXACIN. [Concomitant]
     Active Substance: LEVOFLOXACIN
     Indication: ANTIBIOTIC PROPHYLAXIS
     Dosage: 500 MILLIGRAM
     Route: 048
     Dates: start: 20171121
  29. RANITIDINE HYDROCHLORIDE. [Concomitant]
     Active Substance: RANITIDINE HYDROCHLORIDE
     Indication: ANTACID THERAPY
     Dosage: 75 MILLIGRAM (TWO TIMES)
     Route: 048
     Dates: start: 20171121
  30. RIBOFLAVIN [Concomitant]
     Active Substance: RIBOFLAVIN
     Indication: VITAMIN SUPPLEMENTATION
     Dosage: 2 MILLILITER
     Route: 048
     Dates: start: 20171221
  31. OXYCODONE HYDROCHLORIDE. [Concomitant]
     Active Substance: OXYCODONE HYDROCHLORIDE
     Indication: PAIN MANAGEMENT
     Dosage: 12 MILLILITER
     Route: 065
     Dates: start: 20171221
  32. PENTAMIDINE ISETHIONATE. [Concomitant]
     Active Substance: PENTAMIDINE ISETHIONATE
     Indication: OPPORTUNISTIC INFECTION PROPHYLAXIS
     Dosage: 144 MILLIGRAM
     Route: 041
     Dates: start: 20171210
  33. VENETOCLAX. [Suspect]
     Active Substance: VENETOCLAX
     Indication: REFRACTORY CANCER
     Dosage: 120 MILLIGRAM
     Route: 048
     Dates: start: 20171130, end: 20171130
  34. VENETOCLAX. [Suspect]
     Active Substance: VENETOCLAX
     Dosage: 250 MILLIGRAM
     Route: 048
     Dates: start: 20180129, end: 20180204
  35. MICAFUNGIN. [Concomitant]
     Active Substance: MICAFUNGIN SODIUM
     Indication: ANTIFUNGAL PROPHYLAXIS
     Dosage: 36 MILLIGRAM
     Route: 041
     Dates: start: 20171121
  36. DIPHENHYDRAMINE HYDROCHLORIDE. [Concomitant]
     Active Substance: DIPHENHYDRAMINE HYDROCHLORIDE
     Indication: VOMITING
  37. RETINOL [Concomitant]
     Active Substance: RETINOL
     Indication: VITAMIN SUPPLEMENTATION
     Dosage: 2 MILLILITER
     Route: 048
     Dates: start: 20171221
  38. FUROSEMIDE. [Concomitant]
     Active Substance: FUROSEMIDE
     Indication: PRODUCT USED FOR UNKNOWN INDICATION
     Route: 065

REACTIONS (5)
  - Pneumonia [Not Recovered/Not Resolved]
  - Disseminated intravascular coagulation [Recovered/Resolved]
  - Febrile neutropenia [Recovered/Resolved]
  - Febrile neutropenia [Recovered/Resolved]
  - Febrile neutropenia [Not Recovered/Not Resolved]

NARRATIVE: CASE EVENT DATE: 20180120
